FAERS Safety Report 7685923-2 (Version None)
Quarter: 2011Q3

REPORT INFORMATION
  Report Type: 
  Country: None (occurrence: None)
  Receive Date: 20110815
  Receipt Date: 20110815
  Transmission Date: 20111222
  Serious: Yes (Life-Threatening, Hospitalization, Disabling)
  Sender: FDA-Public Use
  Company Number: None

PATIENT
  Age: 82 Year
  Sex: Female
  Weight: 45 kg

DRUGS (1)
  1. AVASTIN [Suspect]
     Indication: RECTAL CANCER METASTATIC
     Dosage: BEVICIZUMAB 5MK/KG IV
     Route: 042
     Dates: start: 20110401, end: 20110701

REACTIONS (3)
  - GAIT DISTURBANCE [None]
  - MENTAL STATUS CHANGES [None]
  - HYDROCEPHALUS [None]
